FAERS Safety Report 8613003 (Version 3)
Quarter: 2014Q1

REPORT INFORMATION
  Report Type: Spontaneous
  Country: US (occurrence: US)
  Receive Date: 20120613
  Receipt Date: 20140312
  Transmission Date: 20141002
  Serious: No
  Sender: FDA-Public Use
  Company Number: US-ASTRAZENECA-2012SE36640

PATIENT
  Age: 40 Year
  Sex: Female
  Weight: 72.6 kg

DRUGS (4)
  1. NEXIUM [Suspect]
     Route: 048
     Dates: start: 2007, end: 20130827
  2. NEXIUM [Suspect]
     Dosage: TOOK 1 CAPSULE INSTEAD OF 2
     Route: 048
     Dates: start: 20130827
  3. PRILOSEC OTC [Suspect]
     Indication: GASTRIC DISORDER
     Dosage: TWICE DAILY
     Route: 048
     Dates: start: 20130827
  4. ROLAIDS [Concomitant]
     Indication: DYSPEPSIA

REACTIONS (10)
  - Barrett^s oesophagus [Unknown]
  - Chest pain [Unknown]
  - Dysphonia [Unknown]
  - Gastric disorder [Unknown]
  - Malaise [Unknown]
  - Abdominal pain upper [Unknown]
  - Off label use [Unknown]
  - Intentional drug misuse [Unknown]
  - Drug dose omission [Unknown]
  - Drug ineffective [Unknown]
